FAERS Safety Report 9541576 (Version 2)
Quarter: 2015Q4

REPORT INFORMATION
  Report Type: Report from Study
  Country: US (occurrence: US)
  Receive Date: 20130923
  Receipt Date: 20151030
  Transmission Date: 20160305
  Serious: Yes (Other)
  Sender: FDA-Public Use
  Company Number: US-ROCHE-1279470

PATIENT
  Sex: Male

DRUGS (13)
  1. BETADINE [Concomitant]
     Active Substance: POVIDONE-IODINE
  2. FUROSEMIDE. [Concomitant]
     Active Substance: FUROSEMIDE
  3. LISINOPRIL. [Concomitant]
     Active Substance: LISINOPRIL
  4. GLIPIZIDE. [Concomitant]
     Active Substance: GLIPIZIDE
  5. TETRAVISC [Concomitant]
     Active Substance: TETRACAINE HYDROCHLORIDE
  6. ASA [Concomitant]
     Active Substance: ASPIRIN
     Route: 048
  7. LUCENTIS [Suspect]
     Active Substance: RANIBIZUMAB
     Indication: DIABETIC RETINAL OEDEMA
     Route: 050
     Dates: start: 20130507
  8. SIMVASTATIN. [Concomitant]
     Active Substance: SIMVASTATIN
  9. CARVEDILOL. [Concomitant]
     Active Substance: CARVEDILOL
  10. ALCAINE [Concomitant]
     Active Substance: PROPARACAINE HYDROCHLORIDE
  11. LUCENTIS [Suspect]
     Active Substance: RANIBIZUMAB
     Indication: DIABETIC EYE DISEASE
     Dosage: RIGHT EYE OD
     Route: 050
  12. AKTEN [Concomitant]
     Active Substance: LIDOCAINE HYDROCHLORIDE
  13. HCTZ [Concomitant]
     Active Substance: HYDROCHLOROTHIAZIDE
     Indication: HYPERTENSION
     Route: 048

REACTIONS (5)
  - Hypertension [Unknown]
  - Inflammation [Unknown]
  - Eye inflammation [Unknown]
  - Swelling [Unknown]
  - Drug dose omission [Unknown]
